FAERS Safety Report 6509366-X (Version None)
Quarter: 2009Q4

REPORT INFORMATION
  Report Type: 
  Country: None (occurrence: None)
  Receive Date: 20091218
  Receipt Date: 20091218
  Transmission Date: 20100525
  Serious: No
  Sender: FDA-Public Use
  Company Number: None

PATIENT
  Age: 54 Year
  Sex: Female
  Weight: 69.4003 kg

DRUGS (2)
  1. PROMETH W/ CODEINE [Suspect]
     Indication: BRONCHITIS
     Dosage: 1 OR 2 TSP. 4 TIMES DAILY PO AS NEEDED FOR COUGH
     Route: 048
     Dates: start: 20091207, end: 20091214
  2. PROMETH W/ CODEINE [Suspect]
     Indication: COUGH
     Dosage: 1 OR 2 TSP. 4 TIMES DAILY PO AS NEEDED FOR COUGH
     Route: 048
     Dates: start: 20091207, end: 20091214

REACTIONS (4)
  - DRUG INEFFECTIVE [None]
  - PRODUCT ODOUR ABNORMAL [None]
  - PRODUCT SUBSTITUTION ISSUE [None]
  - PRODUCT TASTE ABNORMAL [None]
